FAERS Safety Report 6609834-6 (Version None)
Quarter: 2010Q1

REPORT INFORMATION
  Report Type: 
  Country: None (occurrence: None)
  Receive Date: 20100302
  Receipt Date: 20100218
  Transmission Date: 20100710
  Serious: Yes (Hospitalization, Other)
  Sender: FDA-Public Use
  Company Number: PHHY2010BR09628

PATIENT
  Sex: Female

DRUGS (9)
  1. DIOVAN [Suspect]
     Indication: HYPERTENSION
     Dosage: 1 DF (320 MG), QD
     Dates: start: 20100201
  2. OMEPRAZOLE [Concomitant]
     Dosage: IN FASTING DUE TO THE QUANTITY OF THE MEDICATIONS
     Dates: start: 20020101
  3. TICLOPIDINE HYDROCHLORIDE [Concomitant]
     Indication: CEREBROVASCULAR ACCIDENT
     Dosage: UNK
     Dates: start: 20020101
  4. CITALOPRAM HYDROBROMIDE [Concomitant]
     Indication: DEPRESSION
     Dosage: UNK
     Dates: start: 20091201
  5. CITALOPRAM HYDROBROMIDE [Concomitant]
     Dosage: HALF TABLET IN THE MORNING
     Dates: start: 20091201
  6. SPIRONOLACTONE [Concomitant]
     Dosage: ONE TABLET DAILY
  7. CIPROFIBRATE (LIPLESS) [Concomitant]
     Dosage: 1 TABLET DAILY
  8. LORAZEPAM [Concomitant]
     Dosage: 1 TABLET DAILY
  9. AMITRIPTYLINE HCL [Concomitant]
     Dosage: ONE TABLET DAILY

REACTIONS (4)
  - BLOOD PRESSURE FLUCTUATION [None]
  - ECHOCARDIOGRAM ABNORMAL [None]
  - HYPERTENSION [None]
  - RENAL ATROPHY [None]
